FAERS Safety Report 8112607-9 (Version None)
Quarter: 2011Q4

REPORT INFORMATION
  Report Type: 
  Country: None (occurrence: None)
  Receive Date: 20111227
  Receipt Date: 20111019
  Transmission Date: 20120403
  Serious: Yes (Hospitalization)
  Sender: FDA-Public Use
  Company Number: PHEH2011US06552

PATIENT
  Age: 46 Year
  Sex: Female

DRUGS (1)
  1. GILENYA [Suspect]
     Dosage: 0.5 MG, QD, ORAL
     Route: 048
     Dates: start: 20110908

REACTIONS (6)
  - DYSPNOEA [None]
  - JOINT SWELLING [None]
  - SWELLING FACE [None]
  - WEIGHT INCREASED [None]
  - INCREASED APPETITE [None]
  - OEDEMA PERIPHERAL [None]
